FAERS Safety Report 4856896-2 (Version None)
Quarter: 2005Q4

REPORT INFORMATION
  Report Type: 
  Country: None (occurrence: None)
  Receive Date: 20051219
  Receipt Date: 20050203
  Transmission Date: 20060501
  Serious: No
  Sender: FDA-Public Use
  Company Number: US-GLAXOSMITHKLINE-A0543662A

PATIENT
  Age: 38 Year
  Sex: Female

DRUGS (3)
  1. NICODERM CQ [Suspect]
  2. NICODERM CQ [Suspect]
  3. NICODERM CQ [Suspect]

REACTIONS (7)
  - COUGH [None]
  - HEADACHE [None]
  - IRRITABILITY [None]
  - NASOPHARYNGITIS [None]
  - NAUSEA [None]
  - NICOTINE DEPENDENCE [None]
  - TREMOR [None]
